FAERS Safety Report 6478551-8 (Version None)
Quarter: 2009Q4

REPORT INFORMATION
  Report Type: 
  Country: None (occurrence: None)
  Receive Date: 20091207
  Receipt Date: 20091126
  Transmission Date: 20100525
  Serious: Yes (Hospitalization)
  Sender: FDA-Public Use
  Company Number: ES-ELI_LILLY_AND_COMPANY-ES200912000189

PATIENT
  Age: 62 Year
  Sex: Female

DRUGS (5)
  1. FORTEO [Suspect]
     Indication: OSTEOPOROSIS
     Dosage: 20 UG, DAILY (1/D)
     Route: 058
     Dates: start: 20081101, end: 20091116
  2. CYMBALTA [Concomitant]
     Indication: ANXIETY
     Dosage: 90 MG, DAILY (1/D)
     Route: 048
  3. DIAZEPAM [Concomitant]
     Indication: ANXIETY
     Dosage: 1 D/F, DAILY (1/D)
     Route: 048
  4. NEURYL [Concomitant]
     Indication: ANXIETY
     Dosage: 0.25 MG, DAILY (1/D) (0.5MG HALF PER DAY)
     Route: 048
  5. CALCIUM [Concomitant]
     Indication: OSTEOPOROSIS
     Dosage: 500 MG, 2/D
     Route: 048
     Dates: start: 20081101

REACTIONS (2)
  - HERNIA [None]
  - SUTURE RELATED COMPLICATION [None]
